FAERS Safety Report 4603893-8 (Version None)
Quarter: 2005Q1

REPORT INFORMATION
  Report Type: 
  Country: None (occurrence: None)
  Receive Date: 20050309
  Receipt Date: 20041210
  Transmission Date: 20050727
  Serious: Yes (Hospitalization)
  Sender: FDA-Public Use
  Company Number: FR-YAMANOUCHI-YEHQ20040464

PATIENT
  Age: 52 Year
  Sex: Female

DRUGS (1)
  1. VESICARE [Suspect]
     Indication: BLADDER OPERATION
     Dosage: 10 MG PO
     Route: 048
     Dates: start: 20041022, end: 20041105

REACTIONS (4)
  - EXTRASYSTOLES [None]
  - HYPOTENSION [None]
  - MALAISE [None]
  - TACHYCARDIA [None]
